FAERS Safety Report 18273316 (Version 1)
Quarter: 2020Q3

REPORT INFORMATION
  Report Type: Spontaneous
  Country: US (occurrence: US)
  Receive Date: 20200916
  Receipt Date: 20200916
  Transmission Date: 20201103
  Serious: No
  Sender: FDA-Public Use
  Company Number: US-THERAPEUTICSMD-2020TMD02769

PATIENT
  Age: 74 Year
  Sex: Female
  Weight: 88.44 kg

DRUGS (6)
  1. IMVEXXY [Suspect]
     Active Substance: ESTRADIOL
     Dosage: 10 ?G, 2X/WEEK, BEFORE BED
     Dates: start: 20191028, end: 202006
  2. IMVEXXY [Suspect]
     Active Substance: ESTRADIOL
     Indication: CYSTITIS
     Dosage: 4 ?G, 2X/WEEK, BEFORE BED
     Route: 067
     Dates: start: 202006
  3. ATORVASTATIN [Concomitant]
     Active Substance: ATORVASTATIN
     Dosage: AT LOWEST MG THEY HAVE
  4. NEXIUM [Concomitant]
     Active Substance: ESOMEPRAZOLE MAGNESIUM
  5. DICYCLOMINE [Concomitant]
     Active Substance: DICYCLOMINE HYDROCHLORIDE
  6. IMVEXXY [Suspect]
     Active Substance: ESTRADIOL
     Indication: CYSTITIS
     Dosage: 10 ?G, 1X/DAY, BEFORE BED
     Route: 067
     Dates: start: 20191014, end: 20191027

REACTIONS (4)
  - Product dose omission issue [Not Recovered/Not Resolved]
  - Off label use [Not Recovered/Not Resolved]
  - Abdominal pain lower [Recovered/Resolved]
  - Contraindicated product administered [Not Recovered/Not Resolved]

NARRATIVE: CASE EVENT DATE: 20191014
